FAERS Safety Report 19234712 (Version 2)
Quarter: 2021Q2

REPORT INFORMATION
  Report Type: Spontaneous
  Country: DE (occurrence: DE)
  Receive Date: 20210508
  Receipt Date: 20210614
  Transmission Date: 20210717
  Serious: Yes (Other)
  Sender: FDA-Public Use
  Company Number: DE-ROCHE-2824472

PATIENT
  Age: 62 Year
  Sex: Male
  Weight: 80 kg

DRUGS (5)
  1. CARBOPLATIN. [Suspect]
     Active Substance: CARBOPLATIN
     Indication: NON-SMALL CELL LUNG CANCER
     Dosage: IN COMBINATION WITH TECENTRIQ, CARBOPLATIN AND TAXAN
     Route: 042
     Dates: start: 20201020, end: 20210122
  2. TECENTRIQ [Suspect]
     Active Substance: ATEZOLIZUMAB
     Indication: NON-SMALL CELL LUNG CANCER
     Dosage: IN COMBINATION WITH AVASTIN, CARBOPLATIN AND TAXAN
     Route: 042
     Dates: start: 20201020, end: 202102
  3. AVASTIN [Suspect]
     Active Substance: BEVACIZUMAB
     Indication: NON-SMALL CELL LUNG CANCER
     Dosage: IN COMBINATION WITH TECENTRIQ, CARBOPLATIN AND TAXAN
     Route: 042
     Dates: start: 20201020, end: 202102
  4. PACLITAXEL. [Suspect]
     Active Substance: PACLITAXEL
     Indication: NON-SMALL CELL LUNG CANCER
     Dosage: IN COMBINATION WITH TECENTRIQ, AVASTIN AND CARBOPLATIN
     Route: 042
     Dates: start: 20201020, end: 20210122
  5. AVASTIN [Suspect]
     Active Substance: BEVACIZUMAB
     Dosage: AS MAINTENANCE WITH TECENTRIQ
     Route: 065

REACTIONS (4)
  - Gait disturbance [Unknown]
  - Metastases to meninges [Unknown]
  - Dizziness [Unknown]
  - Blindness unilateral [Unknown]

NARRATIVE: CASE EVENT DATE: 202103
